FAERS Safety Report 8481374 (Version 2)
Quarter: 2013Q4

REPORT INFORMATION
  Report Type: Spontaneous
  Country: US (occurrence: US)
  Receive Date: 20120329
  Receipt Date: 20131112
  Transmission Date: 20140711
  Serious: Yes (Other)
  Sender: FDA-Public Use
  Company Number: US-SANOFI-AVENTIS-2012SA019529

PATIENT
  Age: 71 Year
  Sex: Female

DRUGS (4)
  1. LANTUS SOLOSTAR [Suspect]
     Indication: TYPE 2 DIABETES MELLITUS
     Dosage: 20 UNITS IN THE MORNING, 60 UNITS IN THE EVENING
     Route: 058
     Dates: start: 2007
  2. LANTUS SOLOSTAR [Suspect]
     Indication: TYPE 2 DIABETES MELLITUS
     Dosage: 20 UNITS IN THE MORNING, 60 UNITS IN THE EVENING
     Route: 058
     Dates: start: 2007
  3. SOLOSTAR [Concomitant]
     Indication: TYPE 2 DIABETES MELLITUS
     Dates: start: 2007
  4. NOVOLOG [Concomitant]

REACTIONS (5)
  - Pneumonia [Unknown]
  - Asthma [Unknown]
  - Fall [Unknown]
  - Hip fracture [Unknown]
  - Walking aid user [Unknown]
